FAERS Safety Report 5592833-3 (Version None)
Quarter: 2008Q1

REPORT INFORMATION
  Report Type: 
  Country: None (occurrence: None)
  Receive Date: 20080116
  Receipt Date: 20080108
  Transmission Date: 20080703
  Serious: Yes (Other)
  Sender: FDA-Public Use
  Company Number: PHEH2007US11789

PATIENT
  Age: 57 Year
  Sex: Male
  Weight: 158.73 kg

DRUGS (6)
  1. DIOVAN [Suspect]
     Dosage: UNK, UNK
  2. LISINOPRIL [Concomitant]
  3. BYETTA [Concomitant]
  4. FUROSEMIDE [Concomitant]
  5. WARFARIN SODIUM [Concomitant]
  6. INSULIN [Concomitant]

REACTIONS (3)
  - BLOOD CREATININE INCREASED [None]
  - GLOMERULAR FILTRATION RATE DECREASED [None]
  - WOUND INFECTION STAPHYLOCOCCAL [None]
